FAERS Safety Report 20005138 (Version 1)
Quarter: 2021Q4

REPORT INFORMATION
  Report Type: Spontaneous
  Country: US (occurrence: US)
  Receive Date: 20211027
  Receipt Date: 20211027
  Transmission Date: 20220304
  Serious: Yes (Hospitalization)
  Sender: FDA-Public Use
  Company Number: None

PATIENT
  Age: 57 Year
  Sex: Male
  Weight: 104.33 kg

DRUGS (2)
  1. REGEN-COV [Suspect]
     Active Substance: CASIRIVIMAB\IMDEVIMAB
     Indication: COVID-19
     Route: 041
     Dates: start: 20211027, end: 20211027
  2. REGEN-COV [Suspect]
     Active Substance: CASIRIVIMAB\IMDEVIMAB
     Indication: Bronchitis

REACTIONS (8)
  - Infusion related reaction [None]
  - Confusional state [None]
  - Disorientation [None]
  - Hypotension [None]
  - Pallor [None]
  - Oxygen saturation decreased [None]
  - Pulmonary embolism [None]
  - Cerebrovascular accident [None]

NARRATIVE: CASE EVENT DATE: 20211027
